FAERS Safety Report 15825586 (Version 1)
Quarter: 2019Q1

REPORT INFORMATION
  Report Type: Report from Study
  Country: IT (occurrence: IT)
  Receive Date: 20190115
  Receipt Date: 20190115
  Transmission Date: 20190417
  Serious: Yes (Hospitalization)
  Sender: FDA-Public Use
  Company Number: PHHY2019IT002423

PATIENT
  Age: 77 Year
  Sex: Male

DRUGS (7)
  1. RANITIDINE. [Concomitant]
     Active Substance: RANITIDINE
     Dosage: 150 MG, BID
     Route: 065
     Dates: start: 20181216
  2. NALCROM [Concomitant]
     Active Substance: CROMOLYN SODIUM
     Indication: MASTOCYTOSIS
     Dosage: 250 MG, BID
     Route: 065
     Dates: start: 201801
  3. RANITIDINE. [Concomitant]
     Active Substance: RANITIDINE
     Indication: MASTOCYTOSIS
     Dosage: 150 MG, BID
     Route: 065
     Dates: start: 201801
  4. NALCROM [Concomitant]
     Active Substance: CROMOLYN SODIUM
     Dosage: 250 MG, BID
     Route: 065
     Dates: start: 20181216
  5. PREDNISONE. [Suspect]
     Active Substance: PREDNISONE
     Indication: MASTOCYTOSIS
     Dosage: 125 MG, UNK
     Route: 065
     Dates: start: 201801
  6. MIDOSTAURIN [Suspect]
     Active Substance: MIDOSTAURIN
     Indication: MASTOCYTOSIS
     Dosage: 150 MG, (75 MG TWICE A DAY)
     Route: 048
     Dates: start: 20181023
  7. PREDNISONE. [Suspect]
     Active Substance: PREDNISONE
     Dosage: 125 MG, UNK
     Route: 065
     Dates: start: 20181216

REACTIONS (6)
  - Pneumocystis jirovecii infection [Unknown]
  - Pyrexia [Unknown]
  - Dyspnoea [Unknown]
  - Hypoxia [Recovering/Resolving]
  - Interstitial lung disease [Recovering/Resolving]
  - Renal failure [Recovering/Resolving]

NARRATIVE: CASE EVENT DATE: 20181216
